FAERS Safety Report 25935765 (Version 1)
Quarter: 2025Q4

REPORT INFORMATION
  Report Type: Spontaneous
  Country: US (occurrence: US)
  Receive Date: 20251017
  Receipt Date: 20251017
  Transmission Date: 20260117
  Serious: Yes (Hospitalization, Other)
  Sender: NOVO NORDISK
  Company Number: US-NOVOPROD-1539922

PATIENT
  Age: 71 Year
  Sex: Female

DRUGS (1)
  1. OZEMPIC [Suspect]
     Active Substance: SEMAGLUTIDE
     Indication: Product used for unknown indication
     Dosage: UNK
     Dates: end: 20250803

REACTIONS (9)
  - Blood sodium decreased [Not Recovered/Not Resolved]
  - Pulmonary oedema [Not Recovered/Not Resolved]
  - Pericardial effusion [Unknown]
  - Rotator cuff syndrome [Unknown]
  - Viral infection [Unknown]
  - Fluid retention [Unknown]
  - Malaise [Unknown]
  - Pain in extremity [Unknown]
  - Dizziness [Unknown]

NARRATIVE: CASE EVENT DATE: 20250701
